FAERS Safety Report 17345725 (Version 3)
Quarter: 2020Q1

REPORT INFORMATION
  Report Type: Spontaneous
  Country: DE (occurrence: DE)
  Receive Date: 20200129
  Receipt Date: 20200311
  Transmission Date: 20200409
  Serious: Yes (Other)
  Sender: FDA-Public Use
  Company Number: DE-JNJFOC-20200132915

PATIENT
  Age: 81 Year
  Sex: Male
  Weight: 82 kg

DRUGS (11)
  1. HALDOL DECANOATE [Suspect]
     Active Substance: HALOPERIDOL DECANOATE
     Route: 042
     Dates: start: 20191206, end: 20191208
  2. HALOPERIDOL-RATIOPHARM [Suspect]
     Active Substance: HALOPERIDOL
     Indication: PRODUCT USED FOR UNKNOWN INDICATION
     Route: 048
     Dates: start: 20191125
  3. HALDOL DECANOATE [Suspect]
     Active Substance: HALOPERIDOL DECANOATE
     Route: 042
     Dates: start: 20191204, end: 20191208
  4. HALDOL DECANOATE [Suspect]
     Active Substance: HALOPERIDOL DECANOATE
     Route: 042
     Dates: start: 20191125
  5. HALDOL DECANOATE [Suspect]
     Active Substance: HALOPERIDOL DECANOATE
     Route: 042
     Dates: start: 20191207, end: 20191208
  6. HALOPERIDOL-RATIOPHARM [Suspect]
     Active Substance: HALOPERIDOL
     Route: 048
     Dates: start: 20191126
  7. HALDOL DECANOATE [Suspect]
     Active Substance: HALOPERIDOL DECANOATE
     Indication: DELIRIUM
     Route: 042
     Dates: start: 20191122
  8. HALDOL DECANOATE [Suspect]
     Active Substance: HALOPERIDOL DECANOATE
     Route: 042
     Dates: start: 20191123
  9. HALDOL DECANOATE [Suspect]
     Active Substance: HALOPERIDOL DECANOATE
     Route: 042
     Dates: start: 20191124
  10. HALDOL DECANOATE [Suspect]
     Active Substance: HALOPERIDOL DECANOATE
     Route: 042
     Dates: start: 20191205, end: 20191208
  11. HALDOL DECANOATE [Suspect]
     Active Substance: HALOPERIDOL DECANOATE
     Route: 042
     Dates: start: 20191129

REACTIONS (4)
  - Off label use [Unknown]
  - Atrial fibrillation [Unknown]
  - Inappropriate schedule of product administration [Unknown]
  - Incorrect route of product administration [Unknown]

NARRATIVE: CASE EVENT DATE: 20191122
